FAERS Safety Report 9416510 (Version 1)
Quarter: 2013Q3

REPORT INFORMATION
  Report Type: Report from Study
  Country: CA (occurrence: CA)
  Receive Date: 20130724
  Receipt Date: 20130724
  Transmission Date: 20140515
  Serious: Yes (Other)
  Sender: FDA-Public Use
  Company Number: CA-JNJFOC-20130711088

PATIENT
  Age: 27 Year
  Sex: Female
  Weight: 47 kg

DRUGS (2)
  1. REMICADE [Suspect]
     Indication: CROHN^S DISEASE
     Route: 042
     Dates: start: 20100630
  2. TRI-CYCLEN [Concomitant]
     Indication: CONTRACEPTION
     Route: 065

REACTIONS (2)
  - Road traffic accident [Recovered/Resolved]
  - Laceration [Recovered/Resolved]
